FAERS Safety Report 17653093 (Version 1)
Quarter: 2020Q2

REPORT INFORMATION
  Report Type: Spontaneous
  Country: JP (occurrence: JP)
  Receive Date: 20200409
  Receipt Date: 20200409
  Transmission Date: 20200713
  Serious: Yes (Life-Threatening, Other)
  Sender: FDA-Public Use
  Company Number: JP-ELI_LILLY_AND_COMPANY-JP202004002447

PATIENT
  Age: 75 Year
  Sex: Female

DRUGS (9)
  1. DULOXETINE HYDROCHLORIDE. [Suspect]
     Active Substance: DULOXETINE HYDROCHLORIDE
     Indication: BACK PAIN
     Dosage: 40 MG, DAILY
     Route: 048
  2. MILNACIPRAN [Suspect]
     Active Substance: MILNACIPRAN
     Indication: SOMATIC SYMPTOM DISORDER
     Dosage: 60 MG, DAILY
     Route: 048
  3. PEROSPIRONE [Concomitant]
     Active Substance: PEROSPIRONE
     Indication: SOMATIC SYMPTOM DISORDER
     Dosage: 4 MG, DAILY
     Route: 048
  4. PITAVASTATIN. [Concomitant]
     Active Substance: PITAVASTATIN CALCIUM
     Indication: DYSLIPIDAEMIA
     Route: 048
  5. ANAGLIPTIN [Concomitant]
     Active Substance: ANAGLIPTIN
     Indication: DIABETES MELLITUS
     Route: 048
  6. CANDESARTAN. [Concomitant]
     Active Substance: CANDESARTAN
     Indication: HYPERTENSION
     Route: 048
  7. METFORMIN [Concomitant]
     Active Substance: METFORMIN HYDROCHLORIDE
     Indication: DIABETES MELLITUS
     Route: 048
  8. BROMAZEPAM [Concomitant]
     Active Substance: BROMAZEPAM
     Indication: SOMATIC SYMPTOM DISORDER
     Dosage: 2 MG, DAILY
     Route: 048
  9. AMLODIPINE [Concomitant]
     Active Substance: AMLODIPINE BESYLATE
     Indication: HYPERTENSION
     Route: 048

REACTIONS (8)
  - Serotonin syndrome [Recovering/Resolving]
  - Pneumonia [Unknown]
  - Hepatic function abnormal [Unknown]
  - Renal impairment [Unknown]
  - Leukocytosis [Unknown]
  - Blood creatine phosphokinase increased [Unknown]
  - Pyuria [Unknown]
  - C-reactive protein increased [Unknown]
